FAERS Safety Report 4916319-1 (Version None)
Quarter: 2006Q1

REPORT INFORMATION
  Report Type: 
  Country: None (occurrence: None)
  Receive Date: 20060217
  Receipt Date: 20060207
  Transmission Date: 20060701
  Serious: Yes (Hospitalization, Other)
  Sender: FDA-Public Use
  Company Number: US-MERCK-0602USA01783

PATIENT
  Age: 57 Year
  Sex: Female
  Weight: 45 kg

DRUGS (3)
  1. VIOXX [Suspect]
     Indication: ARTHRITIS
     Route: 048
     Dates: start: 19990101, end: 20020101
  2. VIOXX [Suspect]
     Route: 048
     Dates: start: 19990101, end: 20020101
  3. MOTRIN [Concomitant]
     Indication: ANALGESIC EFFECT
     Route: 065

REACTIONS (4)
  - ANIMAL BITE [None]
  - CARDIAC DISORDER [None]
  - CHEST PAIN [None]
  - MYOCARDIAL INFARCTION [None]
